FAERS Safety Report 5031261-6 (Version None)
Quarter: 2006Q2

REPORT INFORMATION
  Report Type: 
  Country: None (occurrence: None)
  Receive Date: 20060621
  Receipt Date: 20060419
  Transmission Date: 20061013
  Serious: Yes (Other)
  Sender: FDA-Public Use
  Company Number: US-BRISTOL-MYERS SQUIBB COMPANY-13351630

PATIENT
  Age: 16 Year
  Sex: Male
  Weight: 82 kg

DRUGS (4)
  1. ABILIFY [Suspect]
     Indication: BIPOLAR DISORDER
     Dosage: DOSE VALUE:  15 OR 20 MG
     Route: 048
     Dates: start: 20050101
  2. TRAZODONE HCL [Suspect]
     Route: 048
     Dates: start: 20050101, end: 20050101
  3. TRILEPTAL [Suspect]
     Indication: BIPOLAR DISORDER
     Route: 048
     Dates: start: 20050101, end: 20050101
  4. DEXEDRINE [Concomitant]

REACTIONS (9)
  - AMNESIA [None]
  - CIRCULATORY COLLAPSE [None]
  - CONVULSION [None]
  - DIZZINESS [None]
  - HYPOGLYCAEMIA [None]
  - INCREASED APPETITE [None]
  - LIBIDO INCREASED [None]
  - PAINFUL ERECTION [None]
  - SYNCOPE [None]
